FAERS Safety Report 8900711 (Version 5)
Quarter: 2013Q3

REPORT INFORMATION
  Report Type: Report from Study
  Country: US (occurrence: US)
  Receive Date: 20121109
  Receipt Date: 20130731
  Transmission Date: 20140515
  Serious: No
  Sender: FDA-Public Use
  Company Number: US-VERTEX PHARMACEUTICAL INC.-2012-024278

PATIENT
  Age: 58 Year
  Sex: Female

DRUGS (11)
  1. VX-950 (TELAPREVIR) [Suspect]
     Indication: HEPATITIS C
     Dosage: UNK
     Route: 048
     Dates: start: 20121104, end: 20130210
  2. PEGASYS [Suspect]
     Indication: HEPATITIS C
     Dosage: UNK
     Dates: start: 20121104, end: 20130210
  3. RIBAVIRIN [Suspect]
     Indication: HEPATITIS C
     Dosage: UNK
     Dates: start: 20121104, end: 20130210
  4. LORTAB [Concomitant]
  5. HYDROCHLOROTHIAZIDE [Concomitant]
  6. ASA [Concomitant]
     Dosage: 81 MG, UNK
  7. PROZAC [Concomitant]
  8. MELOXICAM [Concomitant]
  9. FLEXERIL [Concomitant]
  10. NITRO [Concomitant]
  11. OMEPRAZOLE [Concomitant]

REACTIONS (5)
  - Rash papular [Recovered/Resolved]
  - Pruritus [Unknown]
  - Haemorrhoids [Unknown]
  - Anorectal discomfort [Unknown]
  - Drug ineffective [Recovered/Resolved]
